FAERS Safety Report 16946360 (Version 1)
Quarter: 2019Q4

REPORT INFORMATION
  Report Type: Spontaneous
  Country: US (occurrence: US)
  Receive Date: 20191022
  Receipt Date: 20191022
  Transmission Date: 20200122
  Serious: Yes (Other)
  Sender: FDA-Public Use
  Company Number: US-009507513-1504USA010916

PATIENT
  Sex: Male

DRUGS (2)
  1. CUBICIN [Suspect]
     Active Substance: DAPTOMYCIN
     Dosage: UNK UNK, TIW
     Route: 042
     Dates: start: 20090618
  2. CUBICIN [Suspect]
     Active Substance: DAPTOMYCIN
     Indication: PRODUCT USED FOR UNKNOWN INDICATION
     Dosage: UNK UNK, TIW
     Route: 042
     Dates: end: 200906

REACTIONS (1)
  - Disseminated intravascular coagulation [Unknown]

NARRATIVE: CASE EVENT DATE: 200906
